FAERS Safety Report 15506509 (Version 6)
Quarter: 2019Q3

REPORT INFORMATION
  Report Type: Report from Study
  Country: CA (occurrence: CA)
  Receive Date: 20181016
  Receipt Date: 20190909
  Transmission Date: 20191004
  Serious: Yes (Other)
  Sender: FDA-Public Use
  Company Number: CA-SA-2017SA014013

PATIENT
  Age: 34 Year
  Sex: Male

DRUGS (11)
  1. REACTINE [CETIRIZINE HYDROCHLORIDE] [Concomitant]
     Active Substance: CETIRIZINE HYDROCHLORIDE
     Indication: PREMEDICATION
     Dosage: 1 DF,UNK
     Route: 048
     Dates: start: 20170123, end: 20170125
  2. ACYCLOVIR [ACICLOVIR] [Concomitant]
     Active Substance: ACYCLOVIR
     Indication: PREMEDICATION
     Dosage: 200 MG,UNK
     Route: 048
     Dates: start: 20170123
  3. TYLENOL [Concomitant]
     Active Substance: ACETAMINOPHEN
     Indication: PREMEDICATION
     Dosage: UNK UNK,PRN
     Route: 048
     Dates: start: 20170123
  4. ALEMTUZUMAB [Suspect]
     Active Substance: ALEMTUZUMAB
     Indication: RELAPSING-REMITTING MULTIPLE SCLEROSIS
     Dosage: 12 MG,QD
     Route: 041
     Dates: start: 20170123, end: 20170125
  5. PARACETAMOL [Suspect]
     Active Substance: ACETAMINOPHEN
     Indication: EYE PAIN
  6. BENADRYL [Concomitant]
     Active Substance: DIPHENHYDRAMINE HYDROCHLORIDE
     Indication: PREMEDICATION
     Dosage: 50 MG,UNK
     Route: 042
     Dates: start: 20170123, end: 20170125
  7. RANITIDINE. [Concomitant]
     Active Substance: RANITIDINE
     Indication: PREMEDICATION
     Dosage: 150 MG,UNK
     Route: 065
     Dates: start: 20170123, end: 20170125
  8. PARACETAMOL [Suspect]
     Active Substance: ACETAMINOPHEN
     Indication: NASOPHARYNGITIS
     Dosage: UNK UNK,Q4H
     Route: 048
     Dates: start: 20171029
  9. IBUPROFEN. [Suspect]
     Active Substance: IBUPROFEN
     Indication: EYE PAIN
  10. IBUPROFEN. [Suspect]
     Active Substance: IBUPROFEN
     Indication: NASOPHARYNGITIS
     Dosage: UNK UNK,Q4H
     Route: 048
     Dates: start: 20171029
  11. SOLU-MEDROL [Concomitant]
     Active Substance: METHYLPREDNISOLONE SODIUM SUCCINATE
     Indication: PREMEDICATION
     Dosage: 1 G,UNK
     Route: 042
     Dates: start: 20170123, end: 20170125

REACTIONS (35)
  - Monocyte percentage increased [Not Recovered/Not Resolved]
  - Cough [Not Recovered/Not Resolved]
  - Lymphocyte percentage decreased [Recovered/Resolved]
  - Vision blurred [Recovered/Resolved]
  - Nasopharyngitis [Recovered/Resolved]
  - Dysarthria [Not Recovered/Not Resolved]
  - Urine analysis abnormal [Not Recovered/Not Resolved]
  - Lymphocyte count decreased [Recovered/Resolved]
  - Multiple sclerosis relapse [Unknown]
  - Oropharyngeal pain [Not Recovered/Not Resolved]
  - Skin plaque [Recovered/Resolved]
  - Dysarthria [Recovered/Resolved]
  - Epistaxis [Recovering/Resolving]
  - Stress [Unknown]
  - Eye haemorrhage [Not Recovered/Not Resolved]
  - Specific gravity urine decreased [Recovered/Resolved]
  - Muscular weakness [Recovered/Resolved]
  - Chest pain [Recovered/Resolved]
  - Eye pain [Recovered/Resolved]
  - Fatigue [Not Recovered/Not Resolved]
  - Vision blurred [Not Recovered/Not Resolved]
  - Red cell distribution width increased [Recovered/Resolved]
  - Urinary casts present [Unknown]
  - Musculoskeletal chest pain [Recovering/Resolving]
  - Headache [Recovered/Resolved]
  - Chest pain [Recovered/Resolved]
  - Vitreous floaters [Not Recovered/Not Resolved]
  - Fatigue [Recovered/Resolved]
  - Dizziness [Recovered/Resolved]
  - Insomnia [Not Recovered/Not Resolved]
  - Crystal urine present [Unknown]
  - Anxiety [Unknown]
  - Blood creatinine increased [Recovered/Resolved]
  - Chest discomfort [Recovered/Resolved]
  - Viral infection [Not Recovered/Not Resolved]

NARRATIVE: CASE EVENT DATE: 20170123
